FAERS Safety Report 14341377 (Version 1)
Quarter: 2018Q1

REPORT INFORMATION
  Report Type: Spontaneous
  Country: RU (occurrence: RU)
  Receive Date: 20180102
  Receipt Date: 20180102
  Transmission Date: 20180509
  Serious: Yes (Other)
  Sender: FDA-Public Use
  Company Number: RU-ROCHE-2047266

PATIENT
  Age: 46 Year
  Sex: Male

DRUGS (1)
  1. ZELBORAF [Suspect]
     Active Substance: VEMURAFENIB
     Indication: METASTATIC MALIGNANT MELANOMA
     Dosage: 4 TABLETS TWICE A DAY
     Route: 048
     Dates: start: 201708

REACTIONS (2)
  - Neurological symptom [Not Recovered/Not Resolved]
  - Metastases to central nervous system [Not Recovered/Not Resolved]
